FAERS Safety Report 5073851-0 (Version None)
Quarter: 2006Q3

REPORT INFORMATION
  Report Type: 
  Country: None (occurrence: None)
  Receive Date: 20060803
  Receipt Date: 20060720
  Transmission Date: 20061208
  Serious: Yes (Hospitalization)
  Sender: FDA-Public Use
  Company Number: 2006-145594-NL

PATIENT
  Age: 29 Year
  Sex: Female

DRUGS (4)
  1. ETONOGESTREL [Suspect]
     Indication: CONTRACEPTION
     Dosage: DF SUBCUTANEOUS
     Route: 058
     Dates: start: 20060417, end: 20060511
  2. INSULIN GLARGINE [Concomitant]
  3. INSULIN ASPART [Concomitant]
  4. LITHIUM CARBONATE [Concomitant]

REACTIONS (4)
  - HYPERGLYCAEMIA [None]
  - NAUSEA [None]
  - ORAL INTAKE REDUCED [None]
  - VOMITING [None]
